FAERS Safety Report 16462649 (Version 1)
Quarter: 2019Q2

REPORT INFORMATION
  Report Type: Spontaneous
  Country: DE (occurrence: DE)
  Receive Date: 20190621
  Receipt Date: 20190621
  Transmission Date: 20190711
  Serious: Yes (Congenital Anomaly)
  Sender: FDA-Public Use
  Company Number: DE-TORRENT-00005773

PATIENT
  Age: 1 Day
  Sex: Female
  Weight: 3 kg

DRUGS (2)
  1. FOLIO FORTE [Concomitant]
     Active Substance: FOLIC ACID\VITAMINS
     Indication: PROPHYLAXIS OF NEURAL TUBE DEFECT
     Dosage: 0.8 MG/D
     Dates: start: 20151027, end: 20151217
  2. VENLAFAXINE [Suspect]
     Active Substance: VENLAFAXINE HYDROCHLORIDE
     Indication: GENERALISED ANXIETY DISORDER
     Dosage: 37.5 MG/D
     Dates: start: 20151027, end: 20160801

REACTIONS (2)
  - Ventricular septal defect [Recovered/Resolved]
  - Atrial septal defect [Recovering/Resolving]

NARRATIVE: CASE EVENT DATE: 20160801
